FAERS Safety Report 8940857 (Version 2)
Quarter: 2012Q4

REPORT INFORMATION
  Report Type: Report from Study
  Country: FR (occurrence: FR)
  Receive Date: 20121203
  Receipt Date: 20121227
  Transmission Date: 20130627
  Serious: Yes (Death)
  Sender: FDA-Public Use
  Company Number: FR-INCYTE CORPORATION-2012IN002395

PATIENT
  Age: 61 Year
  Sex: Female

DRUGS (5)
  1. INC424 [Suspect]
     Indication: MYELOFIBROSIS
     Dosage: 20 mg, bid
     Route: 048
     Dates: start: 20120103, end: 20121022
  2. COVERSYL [Concomitant]
     Dosage: UNK
     Dates: start: 2009
  3. FLECAINE [Concomitant]
     Dosage: UNK
     Dates: start: 2009
  4. TEMERIT [Concomitant]
     Dosage: UNK
     Dates: start: 2009
  5. KARDEGIC [Concomitant]
     Dosage: UNK
     Dates: start: 2011

REACTIONS (2)
  - Pancreatitis necrotising [Fatal]
  - Multi-organ failure [Fatal]
